FAERS Safety Report 7015776-7 (Version None)
Quarter: 2010Q3

REPORT INFORMATION
  Report Type: 
  Country: None (occurrence: None)
  Receive Date: 20100927
  Receipt Date: 20100126
  Transmission Date: 20110219
  Serious: Yes (Other)
  Sender: FDA-Public Use
  Company Number: US-ASTRAZENECA-2009UW14728

PATIENT
  Age: 57 Year
  Sex: Female
  Weight: 57.2 kg

DRUGS (15)
  1. ARIMIDEX [Suspect]
     Indication: BREAST CANCER
     Route: 048
     Dates: start: 20080901
  2. CALCIUM + D [Concomitant]
     Route: 065
  3. AMOXICILLIN [Concomitant]
     Indication: TOOTH INFECTION
     Route: 065
     Dates: start: 20090608
  4. NEEM PLANT POWDER [Concomitant]
     Route: 065
  5. TUMERIC [Concomitant]
     Route: 065
  6. ROSEMARY [Concomitant]
     Route: 065
  7. GARLIC RAW [Concomitant]
     Route: 065
  8. GINGER [Concomitant]
     Route: 065
  9. CUMMIN [Concomitant]
     Route: 065
  10. CORIANDER [Concomitant]
     Route: 065
  11. SENUGREEK [Concomitant]
     Route: 065
  12. APRICOT DRY SEEDS [Concomitant]
     Route: 065
  13. COD LIVER OIL [Concomitant]
     Route: 065
  14. CINNAMON [Concomitant]
     Route: 065
  15. ZOCOR [Concomitant]
     Indication: HYPERCHOLESTEROLAEMIA
     Route: 065
     Dates: start: 20100104

REACTIONS (12)
  - ALOPECIA [None]
  - ARTHRALGIA [None]
  - ASTHENIA [None]
  - BLOOD PRESSURE INCREASED [None]
  - CHILLS [None]
  - FATIGUE [None]
  - HEADACHE [None]
  - HOT FLUSH [None]
  - HYPERCHOLESTEROLAEMIA [None]
  - MYALGIA [None]
  - PAIN IN EXTREMITY [None]
  - SLEEP DISORDER [None]
